FAERS Safety Report 19473803 (Version 3)
Quarter: 2022Q3

REPORT INFORMATION
  Report Type: Spontaneous
  Country: JP (occurrence: JP)
  Receive Date: 20210629
  Receipt Date: 20220704
  Transmission Date: 20221027
  Serious: Yes (Hospitalization, Other)
  Sender: FDA-Public Use
  Company Number: JP-BAYER-2021-165408

PATIENT
  Age: 85 Year
  Sex: Male
  Weight: 49.9 kg

DRUGS (5)
  1. NUBEQA [Suspect]
     Active Substance: DAROLUTAMIDE
     Indication: Prostate cancer
     Dosage: DAILY DOSE 1200 MG
     Route: 048
     Dates: start: 20210521, end: 20210622
  2. AMITIZA [Concomitant]
     Active Substance: LUBIPROSTONE
     Indication: Constipation
     Dosage: DAILY DOSE 48 ?G
     Route: 048
     Dates: start: 20210305, end: 20210621
  3. MAGNESIUM OXIDE [Concomitant]
     Active Substance: MAGNESIUM OXIDE
     Indication: Constipation
     Dosage: DAILY DOSE 500 MG
     Route: 048
     Dates: start: 20210416, end: 20210621
  4. POLARAMINE [Concomitant]
     Active Substance: DEXCHLORPHENIRAMINE MALEATE
     Indication: Rash
     Dosage: DAILY DOSE 2 MG
     Route: 048
     Dates: start: 20210305, end: 20210603
  5. ALESION [Concomitant]
     Active Substance: EPINASTINE HYDROCHLORIDE
     Indication: Rash
     Dosage: DAILY DOSE 20 MG
     Route: 048
     Dates: start: 20210416, end: 20210603

REACTIONS (7)
  - Decreased appetite [Recovered/Resolved]
  - Nausea [Recovered/Resolved]
  - Vomiting [Recovered/Resolved]
  - Constipation [Recovered/Resolved]
  - Malaise [None]
  - Prostate cancer [None]
  - Rash [Recovered/Resolved]

NARRATIVE: CASE EVENT DATE: 20210619
